FAERS Safety Report 4462331-9 (Version None)
Quarter: 2004Q3

REPORT INFORMATION
  Report Type: 
  Country: None (occurrence: None)
  Receive Date: 20040924
  Receipt Date: 20040917
  Transmission Date: 20050211
  Serious: Yes (Other)
  Sender: FDA-Public Use
  Company Number: 232287K04USA

PATIENT
  Age: 56 Year
  Sex: 0

DRUGS (2)
  1. REBIF [Suspect]
     Indication: MULTIPLE SCLEROSIS
     Dosage: 44 MCG, 3 IN 1 WEEKS, SUBCUTANEOUS
     Route: 058
     Dates: start: 20020617
  2. TIZANIDINE HYDROCHLORIDE [Concomitant]

REACTIONS (4)
  - ABDOMINAL INFECTION [None]
  - HERPES ZOSTER [None]
  - INJECTION SITE INFLAMMATION [None]
  - NECROSIS [None]
